FAERS Safety Report 13399486 (Version 1)
Quarter: 2017Q2

REPORT INFORMATION
  Report Type: Spontaneous
  Country: FR (occurrence: FR)
  Receive Date: 20170404
  Receipt Date: 20170404
  Transmission Date: 20170830
  Serious: Yes (Death, Other)
  Sender: FDA-Public Use
  Company Number: FR-ASTRAZENECA-2017SE33637

PATIENT
  Age: 29685 Day
  Sex: Female

DRUGS (7)
  1. BRILIQUE [Suspect]
     Active Substance: TICAGRELOR
     Dosage: LOAD DOSE OF TWO TABLETS
     Route: 048
     Dates: start: 20170307
  2. BRILIQUE [Suspect]
     Active Substance: TICAGRELOR
     Dosage: 90.0MG UNKNOWN
     Route: 048
     Dates: start: 20170307, end: 20170308
  3. ASPIRIN. [Suspect]
     Active Substance: ASPIRIN
     Dosage: 250.0MG UNKNOWN
     Route: 042
     Dates: start: 20170307
  4. KARDEGIC [Suspect]
     Active Substance: ASPIRIN LYSINE
     Dosage: 75.0MG UNKNOWN
     Route: 048
     Dates: start: 20170307, end: 20170308
  5. ARIXTRA [Suspect]
     Active Substance: FONDAPARINUX SODIUM
     Dosage: 7.5
     Route: 065
     Dates: start: 20170307, end: 20170308
  6. ARIXTRA [Suspect]
     Active Substance: FONDAPARINUX SODIUM
     Dosage: 2.5
     Route: 065
     Dates: start: 20170307, end: 20170308
  7. RAMIPRIL. [Concomitant]
     Active Substance: RAMIPRIL
     Dates: start: 20170307

REACTIONS (10)
  - Subdural haematoma [Fatal]
  - Facial bones fracture [Unknown]
  - Brain herniation [Unknown]
  - Hypertension [Unknown]
  - Head injury [Unknown]
  - Agitation [Unknown]
  - Confusional state [Unknown]
  - Troponin increased [Unknown]
  - Jaw fracture [Unknown]
  - Mydriasis [Unknown]

NARRATIVE: CASE EVENT DATE: 20170308
